FAERS Safety Report 7330670-X (Version None)
Quarter: 2011Q1

REPORT INFORMATION
  Report Type: 
  Country: None (occurrence: None)
  Receive Date: 20110225
  Receipt Date: 20110225
  Transmission Date: 20110831
  Serious: Yes (Hospitalization, Other)
  Sender: FDA-Public Use
  Company Number: None

PATIENT
  Sex: Female

DRUGS (1)
  1. NEUTROGENA DEEP CLEAN FACIAL CLEANSER [Suspect]
     Dosage: TOPICAL
     Route: 061

REACTIONS (2)
  - CONTUSION [None]
  - HYPERSENSITIVITY [None]
